FAERS Safety Report 8076987-5 (Version None)
Quarter: 2012Q1

REPORT INFORMATION
  Report Type: 
  Country: None (occurrence: None)
  Receive Date: 20120127
  Receipt Date: 20120125
  Transmission Date: 20120608
  Serious: Yes (Death, Hospitalization)
  Sender: FDA-Public Use
  Company Number: US-GLAXOSMITHKLINE-B0718324A

PATIENT
  Age: 79 Year
  Sex: Female
  Weight: 92.3 kg

DRUGS (4)
  1. LEXAPRO [Concomitant]
  2. METFORMIN HCL [Concomitant]
  3. NORVASC [Concomitant]
  4. AVANDIA [Suspect]
     Indication: DIABETES MELLITUS
     Dosage: 4MG PER DAY
     Route: 048
     Dates: start: 20050321, end: 20090410

REACTIONS (2)
  - PNEUMONIA [None]
  - SEPSIS [None]
